FAERS Safety Report 20908650 (Version 4)
Quarter: 2024Q4

REPORT INFORMATION
  Report Type: Report from Study
  Country: US (occurrence: US)
  Receive Date: 20220603
  Receipt Date: 20241112
  Transmission Date: 20250114
  Serious: Yes (Hospitalization, Other)
  Sender: TAKEDA
  Company Number: US-TAKEDA-2022TUS036895

PATIENT
  Age: 83 Year
  Sex: Male

DRUGS (3)
  1. ADVATE [Suspect]
     Active Substance: ANTIHEMOPHILIC FACTOR, HUMAN RECOMBINANT
     Indication: Product used for unknown indication
     Dosage: 4900 INTERNATIONAL UNIT
  2. ADVATE [Suspect]
     Active Substance: ANTIHEMOPHILIC FACTOR, HUMAN RECOMBINANT
     Dosage: 2450 INTERNATIONAL UNIT
  3. ADVATE [Suspect]
     Active Substance: ANTIHEMOPHILIC FACTOR, HUMAN RECOMBINANT
     Dosage: 4750 INTERNATIONAL UNIT

REACTIONS (6)
  - Head injury [Unknown]
  - Fall [Unknown]
  - Mouth haemorrhage [Recovered/Resolved]
  - Gingival bleeding [Unknown]
  - Mouth injury [Unknown]
  - Gingival injury [Unknown]

NARRATIVE: CASE EVENT DATE: 20220529
